FAERS Safety Report 17228167 (Version 1)
Quarter: 2020Q1

REPORT INFORMATION
  Report Type: Spontaneous
  Country: NL (occurrence: NL)
  Receive Date: 20200103
  Receipt Date: 20200103
  Transmission Date: 20200409
  Serious: Yes (Hospitalization, Other)
  Sender: FDA-Public Use
  Company Number: ALC2019NL003131

PATIENT

DRUGS (1)
  1. FLUORESCEINE [Suspect]
     Active Substance: FLUORESCEIN SODIUM
     Indication: PRODUCT USED FOR UNKNOWN INDICATION
     Dosage: 5 ML
     Route: 042

REACTIONS (8)
  - Urine albumin/creatinine ratio increased [Recovering/Resolving]
  - Atrial fibrillation [Recovered/Resolved]
  - Protein urine present [Recovering/Resolving]
  - Metabolic acidosis [Recovered/Resolved]
  - Chromaturia [Recovering/Resolving]
  - Anaphylactic reaction [Recovered/Resolved]
  - Urine protein/creatinine ratio increased [Recovering/Resolving]
  - Albumin urine present [Recovering/Resolving]
